FAERS Safety Report 20427109 (Version 1)
Quarter: 2022Q1

REPORT INFORMATION
  Report Type: Report from Study
  Country: US (occurrence: US)
  Receive Date: 20220204
  Receipt Date: 20220204
  Transmission Date: 20220423
  Serious: No
  Sender: FDA-Public Use
  Company Number: US-EXELIXIS-CABO-21043351

PATIENT
  Age: 68 Year
  Sex: Female
  Weight: 72.99 kg

DRUGS (1)
  1. CABOMETYX [Suspect]
     Active Substance: CABOZANTINIB S-MALATE
     Indication: Renal cancer
     Dosage: 60 MG, QD(MONDAY-FRIDAY)
     Route: 048
     Dates: start: 20201228

REACTIONS (7)
  - Tooth fracture [Unknown]
  - Musculoskeletal pain [Unknown]
  - Oropharyngeal pain [Recovering/Resolving]
  - Ear pain [Recovered/Resolved]
  - Diarrhoea [Unknown]
  - Dysphagia [Recovering/Resolving]
  - Inappropriate schedule of product administration [Unknown]

NARRATIVE: CASE EVENT DATE: 20201228
